FAERS Safety Report 5856297-4 (Version None)
Quarter: 2008Q3

REPORT INFORMATION
  Report Type: 
  Country: None (occurrence: None)
  Receive Date: 20080825
  Receipt Date: 20080821
  Transmission Date: 20090109
  Serious: Yes (Other)
  Sender: FDA-Public Use
  Company Number: D0058250A

PATIENT
  Age: 62 Year
  Sex: Male
  Weight: 87 kg

DRUGS (4)
  1. VIANI DISKUS [Suspect]
     Indication: CHRONIC OBSTRUCTIVE PULMONARY DISEASE
     Route: 065
     Dates: start: 20080421, end: 20080729
  2. BERODUAL [Concomitant]
     Route: 065
  3. BEROTEC [Concomitant]
     Route: 065
  4. EBASTEL [Concomitant]
     Route: 065

REACTIONS (1)
  - LACTOSE INTOLERANCE [None]
